FAERS Safety Report 5078695-1 (Version None)
Quarter: 2006Q3

REPORT INFORMATION
  Report Type: 
  Country: None (occurrence: None)
  Receive Date: 20060724
  Receipt Date: 20051110
  Transmission Date: 20061208
  Serious: Yes (Hospitalization)
  Sender: FDA-Public Use
  Company Number: 2005153870

PATIENT
  Sex: Female

DRUGS (1)
  1. CLINDAMYCIN HYDROCHLORIDE [Suspect]
     Indication: ILL-DEFINED DISORDER

REACTIONS (3)
  - CLOSTRIDIAL INFECTION [None]
  - DIARRHOEA [None]
  - WEIGHT DECREASED [None]
